FAERS Safety Report 4448427-6 (Version None)
Quarter: 2004Q3

REPORT INFORMATION
  Report Type: 
  Country: None (occurrence: None)
  Receive Date: 20040914
  Receipt Date: 20040902
  Transmission Date: 20050211
  Serious: Yes (Death, Hospitalization)
  Sender: FDA-Public Use
  Company Number: DE-JNJFOC-20040803117

PATIENT
  Age: 62 Year
  Sex: Male

DRUGS (6)
  1. REOPRO [Suspect]
     Route: 042
  2. REOPRO [Suspect]
     Route: 042
  3. INTEGRILIN [Suspect]
  4. CLOPIDOGREL [Suspect]
  5. THYREOSTATICS [Concomitant]
  6. UNFRACTIONATED HEPARIN [Concomitant]

REACTIONS (5)
  - ANAEMIA [None]
  - HAEMORRHAGE [None]
  - LEUKOPENIA [None]
  - MYOCARDIAL INFARCTION [None]
  - THROMBOCYTOPENIA [None]
